FAERS Safety Report 11686100 (Version 1)
Quarter: 2015Q4

REPORT INFORMATION
  Report Type: Spontaneous
  Country: US (occurrence: US)
  Receive Date: 20151030
  Receipt Date: 20151030
  Transmission Date: 20160304
  Serious: No
  Sender: FDA-Public Use
  Company Number: US-ASTRAZENECA-2015SE99848

PATIENT
  Sex: Female
  Weight: 74.4 kg

DRUGS (3)
  1. PULMICORT FLEXHALER [Suspect]
     Active Substance: BUDESONIDE
     Indication: DYSPNOEA
     Route: 055
     Dates: start: 20151005
  2. NASONEX [Concomitant]
     Active Substance: MOMETASONE FUROATE
     Indication: STEROID THERAPY
  3. SINGULAIR [Concomitant]
     Active Substance: MONTELUKAST SODIUM
     Indication: DYSPNOEA
     Dosage: DAILY

REACTIONS (8)
  - Pain in jaw [Unknown]
  - Pain [Unknown]
  - Headache [Unknown]
  - Ear pain [Unknown]
  - Nausea [Unknown]
  - Condition aggravated [Unknown]
  - Off label use [Unknown]
  - Poor quality sleep [Unknown]
